FAERS Safety Report 5663917-6 (Version None)
Quarter: 2008Q1

REPORT INFORMATION
  Report Type: 
  Country: None (occurrence: None)
  Receive Date: 20080311
  Receipt Date: 20080226
  Transmission Date: 20080703
  Serious: Yes (Death, Life-Threatening)
  Sender: FDA-Public Use
  Company Number: POMP-1000075

PATIENT
  Age: 15 Month
  Sex: Male
  Weight: 11.9 kg

DRUGS (1)
  1. MYOZYME [Suspect]
     Indication: GLYCOGEN STORAGE DISEASE TYPE II
     Dosage: 240 MG, Q2W, INTRAVENOUS
     Route: 042
     Dates: start: 20070401

REACTIONS (3)
  - PNEUMONIA ASPIRATION [None]
  - RESPIRATORY FAILURE [None]
  - RESPIRATORY TRACT INFECTION VIRAL [None]
